FAERS Safety Report 4392599-9 (Version None)
Quarter: 2004Q3

REPORT INFORMATION
  Report Type: 
  Country: None (occurrence: None)
  Receive Date: 20040702
  Receipt Date: 20040625
  Transmission Date: 20050211
  Serious: Yes (Hospitalization)
  Sender: FDA-Public Use
  Company Number: GBWYE862029JUN04

PATIENT
  Age: 56 Year
  Sex: Female

DRUGS (3)
  1. PROGRAF [Suspect]
     Indication: IMMUNOSUPPRESSANT DRUG THERAPY
     Dates: end: 20040618
  2. MYCOPHENOLATE MOFETIL [Suspect]
     Indication: IMMUNOSUPPRESSION
     Dosage: 500MG 3X/1 D AY; 1G / DAY
     Route: 048
     Dates: start: 20040621
  3. PREDNISOLONE [Suspect]
     Indication: IMMUNOSUPPRESSION
     Dosage: 7.5MG 1 XER 1 DAY
     Route: 048
     Dates: start: 20040621

REACTIONS (4)
  - ABDOMINAL PAIN [None]
  - CHILLS [None]
  - MALAISE [None]
  - PYREXIA [None]
